FAERS Safety Report 15451826 (Version 3)
Quarter: 2019Q3

REPORT INFORMATION
  Report Type: Spontaneous
  Country: US (occurrence: US)
  Receive Date: 20181001
  Receipt Date: 20190814
  Transmission Date: 20191004
  Serious: Yes (Other)
  Sender: FDA-Public Use
  Company Number: US-PFIZER INC-2018388686

PATIENT
  Age: 56 Year
  Sex: Female
  Weight: 94.35 kg

DRUGS (2)
  1. XELJANZ [Suspect]
     Active Substance: TOFACITINIB CITRATE
     Indication: RHEUMATOID ARTHRITIS
     Dosage: 5 MG, TWICE A DAY
     Route: 048
     Dates: start: 201801
  2. PREDNISONE. [Suspect]
     Active Substance: PREDNISONE
     Dosage: UNK, OCCASIONALLY
     Dates: start: 201801

REACTIONS (4)
  - Weight increased [Unknown]
  - Diabetes mellitus [Unknown]
  - Weight decreased [Unknown]
  - Condition aggravated [Unknown]

NARRATIVE: CASE EVENT DATE: 2018
